FAERS Safety Report 6530583-7 (Version None)
Quarter: 2010Q1

REPORT INFORMATION
  Report Type: 
  Country: None (occurrence: None)
  Receive Date: 20100108
  Receipt Date: 20091228
  Transmission Date: 20100710
  Serious: Yes (Other)
  Sender: FDA-Public Use
  Company Number: US-ABBOTT-09P-163-0502992-00

PATIENT
  Sex: Female
  Weight: 102.15 kg

DRUGS (8)
  1. HUMIRA [Suspect]
     Indication: PSORIASIS
     Dates: start: 20081229, end: 20090701
  2. HUMIRA [Suspect]
  3. ZIAC [Concomitant]
     Indication: HYPERTENSION
  4. ALLOPURINOL [Concomitant]
     Indication: GOUT
  5. METFORMIN [Concomitant]
     Indication: TYPE 2 DIABETES MELLITUS
  6. PLAVIX [Concomitant]
     Indication: CARDIAC DISORDER
  7. SYNTHROID [Concomitant]
     Indication: HYPOTHYROIDISM
  8. ALTACE [Concomitant]
     Indication: CARDIAC DISORDER

REACTIONS (4)
  - ENDODONTIC PROCEDURE [None]
  - LIPOMA [None]
  - NASOPHARYNGITIS [None]
  - VULVOVAGINAL MYCOTIC INFECTION [None]
